FAERS Safety Report 9690141 (Version 1)
Quarter: 2013Q4

REPORT INFORMATION
  Report Type: Report from Study
  Country: IL (occurrence: IL)
  Receive Date: 20131115
  Receipt Date: 20131115
  Transmission Date: 20140711
  Serious: Yes (Death, Hospitalization)
  Sender: FDA-Public Use
  Company Number: PHHY2013IL129926

PATIENT
  Age: 91 Year
  Sex: Female

DRUGS (2)
  1. SANDOSTATIN LAR [Suspect]
     Indication: CARCINOID TUMOUR
     Dosage: 30 MG Q4W
     Dates: start: 20070805
  2. SANDOSTATIN LAR [Suspect]
     Dosage: 30 MG Q4W
     Dates: start: 20131112

REACTIONS (4)
  - Cardiac failure [Fatal]
  - Dyspnoea [Fatal]
  - Haematochezia [Unknown]
  - Haemorrhoids [Unknown]
